FAERS Safety Report 6537958-0 (Version None)
Quarter: 2010Q1

REPORT INFORMATION
  Report Type: 
  Country: None (occurrence: None)
  Receive Date: 20100111
  Receipt Date: 20091202
  Transmission Date: 20100710
  Serious: Yes (Other)
  Sender: FDA-Public Use
  Company Number: 2009010832

PATIENT
  Age: 59 Year
  Sex: Male

DRUGS (2)
  1. TRISENOX [Suspect]
     Indication: ACUTE PROMYELOCYTIC LEUKAEMIA
     Dosage: (9.4 MG), INTRAVENOUS DRIP
     Route: 041
     Dates: start: 20090130, end: 20090404
  2. VESANOID [Suspect]
     Indication: ACUTE PROMYELOCYTIC LEUKAEMIA
     Dosage: 140 MG (140 MG,  1 IN 1 D), ORAL
     Route: 048
     Dates: start: 20090122, end: 20090129

REACTIONS (9)
  - ACUTE PROMYELOCYTIC LEUKAEMIA DIFFERENTIATION SYNDROME [None]
  - CLOSTRIDIUM COLITIS [None]
  - FEBRILE NEUTROPENIA [None]
  - HEADACHE [None]
  - HERPES ZOSTER [None]
  - LEUKAEMIA RECURRENT [None]
  - MONOCYTE COUNT INCREASED [None]
  - PSEUDOMEMBRANOUS COLITIS [None]
  - RASH PUSTULAR [None]
